FAERS Safety Report 7704310-1 (Version None)
Quarter: 2011Q3

REPORT INFORMATION
  Report Type: 
  Country: None (occurrence: None)
  Receive Date: 20110823
  Receipt Date: 20110812
  Transmission Date: 20111222
  Serious: Yes (Hospitalization, Other)
  Sender: FDA-Public Use
  Company Number: PHHY2011US42889

PATIENT
  Sex: Female
  Weight: 57.4 kg

DRUGS (2)
  1. EXJADE [Suspect]
     Indication: MYELODYSPLASTIC SYNDROME
     Dosage: 1000 MG, DAILY
     Route: 048
     Dates: start: 20090801
  2. EXJADE [Suspect]
     Indication: IRON OVERLOAD
     Dosage: 1000 MG, DAILY
     Route: 048
     Dates: start: 20090812

REACTIONS (6)
  - SPLENIC INFARCTION [None]
  - NAUSEA [None]
  - SPLENOMEGALY [None]
  - CONSTIPATION [None]
  - VOMITING [None]
  - ABDOMINAL PAIN [None]
